FAERS Safety Report 6994299-5 (Version None)
Quarter: 2010Q3

REPORT INFORMATION
  Report Type: 
  Country: None (occurrence: None)
  Receive Date: 20100917
  Receipt Date: 20100909
  Transmission Date: 20110219
  Serious: Yes (Hospitalization)
  Sender: FDA-Public Use
  Company Number: DE-ABBOTT-08P-062-0472147-01

PATIENT
  Sex: Female
  Weight: 104 kg

DRUGS (8)
  1. HUMIRA [Suspect]
     Indication: RHEUMATOID ARTHRITIS
     Route: 058
     Dates: start: 20031118, end: 20080716
  2. METHYLPREDNISOLONE [Concomitant]
     Indication: RHEUMATOID ARTHRITIS
     Dates: start: 20080716
  3. ARCOXIA [Concomitant]
     Indication: RHEUMATOID ARTHRITIS
     Dates: start: 20070119
  4. NEXIUM [Concomitant]
     Indication: GASTROOESOPHAGEAL REFLUX DISEASE
     Dates: start: 20071213
  5. FRAGMIN P FORTE [Concomitant]
     Indication: THROMBOSIS PROPHYLAXIS
     Dates: start: 20080508
  6. FOLSAN [Concomitant]
     Indication: RHEUMATOID ARTHRITIS
     Dates: start: 20080508
  7. KALINOR [Concomitant]
     Indication: BLOOD POTASSIUM DECREASED
     Dates: start: 20080529, end: 20080818
  8. FERRO SANOL [Concomitant]
     Indication: IRON DEFICIENCY ANAEMIA
     Dates: start: 20080729, end: 20080818

REACTIONS (1)
  - SKIN NECROSIS [None]
